FAERS Safety Report 9473083 (Version 3)
Quarter: 2014Q1

REPORT INFORMATION
  Report Type: Spontaneous
  Country: US (occurrence: US)
  Receive Date: 20130823
  Receipt Date: 20140325
  Transmission Date: 20141002
  Serious: Yes (Other)
  Sender: FDA-Public Use
  Company Number: US-BRISTOL-MYERS SQUIBB COMPANY-17417270

PATIENT
  Age: 64 Year
  Sex: Male

DRUGS (11)
  1. SPRYCEL [Suspect]
     Dosage: INTRPTD ON MAR2013
     Dates: start: 201212
  2. KLOR-CON [Concomitant]
  3. VYTORIN [Concomitant]
     Dosage: 1DF:10/40 DOSE NOS
  4. LOSARTAN [Concomitant]
     Dosage: 1DF:100/12.5 DOSE NOS
  5. PRADAXA [Concomitant]
  6. METFORMIN [Concomitant]
     Dosage: 1DF:2.5/500MG
  7. SOTALOL [Concomitant]
  8. LYRICA [Concomitant]
  9. DIGOXIN [Concomitant]
  10. LASIX [Concomitant]
  11. PROZAC [Concomitant]

REACTIONS (7)
  - Cardiac disorder [Unknown]
  - Haematochezia [Unknown]
  - Anaemia [Unknown]
  - Nausea [Not Recovered/Not Resolved]
  - Constipation [Unknown]
  - Flatulence [Unknown]
  - Dyspnoea [Unknown]
